FAERS Safety Report 6816821-1 (Version None)
Quarter: 2010Q2

REPORT INFORMATION
  Report Type: 
  Country: None (occurrence: None)
  Receive Date: 20100630
  Receipt Date: 20100621
  Transmission Date: 20101027
  Serious: Yes (Death, Life-Threatening)
  Sender: FDA-Public Use
  Company Number: 2010JP000706

PATIENT
  Age: 80 Year
  Sex: Female
  Weight: 38.4 kg

DRUGS (19)
  1. DORMICUM (MIDAZOLAM) INJECTION, 10MG [Suspect]
     Indication: ACUTE RESPIRATORY DISTRESS SYNDROME
     Dosage: CONTINUOUS, IV DRIP
     Route: 041
     Dates: start: 20091229, end: 20100119
  2. DORMICUM (MIDAZOLAM) INJECTION, 10MG [Suspect]
     Indication: DISSEMINATED INTRAVASCULAR COAGULATION
     Dosage: CONTINUOUS, IV DRIP
     Route: 041
     Dates: start: 20091229, end: 20100119
  3. FUNGUARD (MICAFUNGIN) INJECTION [Suspect]
     Indication: PNEUMONIA
     Dosage: 150 MG, UID/QD, IV DRIP
     Route: 041
     Dates: start: 20100102, end: 20100115
  4. MEROPEN (MEROPENEM TRIHYDRATE) INJECTION [Suspect]
     Indication: PNEUMONIA
     Dosage: 0.5 G, TID, IV DRIP
     Route: 041
     Dates: start: 20091231, end: 20100113
  5. CLIDAMACIN (CLINDAMYCIN PHOSPHATE) INJECTION [Suspect]
     Indication: PNEUMONIA
     Dosage: 600 MG, TID, IV DRIP
     Route: 041
     Dates: start: 20091231, end: 20100113
  6. ELASPOL (SIVELESTAT SODIUM) INJECTION [Suspect]
     Indication: ACUTE RESPIRATORY DISTRESS SYNDROME
     Dosage: 200 MG, CONTINUOUS, IV DRIP
     Route: 041
     Dates: start: 20100102, end: 20100115
  7. ELASPOL (SIVELESTAT SODIUM) INJECTION [Suspect]
     Indication: DISSEMINATED INTRAVASCULAR COAGULATION
     Dosage: 200 MG, CONTINUOUS, IV DRIP
     Route: 041
     Dates: start: 20100102, end: 20100115
  8. CATABON (DOPAMINE HYDROCHLORIDE) INJECTION [Suspect]
     Indication: CARDIAC FAILURE
     Dosage: IV DRIP
     Route: 041
     Dates: start: 20100102, end: 20100119
  9. LASIX (FUROSEMIDE) INJECTION [Suspect]
     Indication: CARDIAC FAILURE
     Dosage: 20 MG, BID, IV NOS
     Route: 042
     Dates: start: 20091229
  10. SOLDACTONE (POTASSIUM CANRENOATE) INJECTION [Suspect]
     Indication: CARDIAC FAILURE
     Dosage: 100 MG, UID/QD, IV NOS
     Route: 042
     Dates: start: 20100102, end: 20100114
  11. SOLU-MEDROL [Suspect]
     Indication: ACUTE RESPIRATORY DISTRESS SYNDROME
     Dosage: 250 MG, BID, IV DRIP
     Route: 041
     Dates: start: 20100104, end: 20100106
  12. SOLU-MEDROL [Suspect]
     Indication: DISSEMINATED INTRAVASCULAR COAGULATION
     Dosage: 250 MG, BID, IV DRIP
     Route: 041
     Dates: start: 20100104, end: 20100106
  13. FOY (GABEXATE MESILATE) INJECTION [Suspect]
     Indication: ACUTE RESPIRATORY DISTRESS SYNDROME
     Dosage: 800 MG, CONTINUOUS, IV DRIP
     Route: 041
     Dates: start: 20100106, end: 20100109
  14. FOY (GABEXATE MESILATE) INJECTION [Suspect]
     Indication: DISSEMINATED INTRAVASCULAR COAGULATION
     Dosage: 800 MG, CONTINUOUS, IV DRIP
     Route: 041
     Dates: start: 20100106, end: 20100109
  15. PN TWIN (AMINO ACIDS NOS, CARBOHYDRATES NOS, ELECTROLYTES NOS) INJECTI [Concomitant]
  16. NEOLAMIN MULTI V (VITAMINS NOS) INJECTION [Concomitant]
  17. DANTRIUM (DANTROLENE SODIUM) INJECTION [Concomitant]
  18. MENESIT (CARBIDOPA, LEVODOPA) PER ORAL NOS [Concomitant]
  19. THYRADIN (THYROID) PER ORAL NOS [Concomitant]

REACTIONS (6)
  - ACUTE RESPIRATORY DISTRESS SYNDROME [None]
  - ALTERED STATE OF CONSCIOUSNESS [None]
  - CARDIAC FAILURE [None]
  - DELAYED RECOVERY FROM ANAESTHESIA [None]
  - DRUG HYPERSENSITIVITY [None]
  - PNEUMONIA [None]
